FAERS Safety Report 4382995-8 (Version None)
Quarter: 2004Q2

REPORT INFORMATION
  Report Type: 
  Country: None (occurrence: None)
  Receive Date: 20040528
  Receipt Date: 20030408
  Transmission Date: 20050107
  Serious: No
  Sender: FDA-Public Use
  Company Number: TAP2003Q00860

PATIENT
  Age: 52 Year
  Sex: Female
  Weight: 61.2356 kg

DRUGS (6)
  1. LUPRON DEPOT-3 [Suspect]
     Indication: ANAEMIA
     Dosage: 3.75 MG, 1 IN 1 M, INTRAMUSCULAR
     Route: 030
     Dates: start: 20030201
  2. LUPRON DEPOT-3 [Suspect]
     Indication: HAEMORRHAGE
     Dosage: 3.75 MG, 1 IN 1 M, INTRAMUSCULAR
     Route: 030
     Dates: start: 20030201
  3. LUPRON DEPOT-3 [Suspect]
     Indication: UTERINE LEIOMYOMA
     Dosage: 3.75 MG, 1 IN 1 M, INTRAMUSCULAR
     Route: 030
     Dates: start: 20030201
  4. NORETHINDRONE (NORETHISTERONE) [Concomitant]
  5. VITAMIN C (ASCORBIC ACID) [Concomitant]
  6. IRON (IRON) [Concomitant]

REACTIONS (6)
  - ANAEMIA [None]
  - CONDITION AGGRAVATED [None]
  - DIZZINESS [None]
  - DYSPNOEA [None]
  - PALPITATIONS [None]
  - TACHYCARDIA [None]
